FAERS Safety Report 4346164-X (Version None)
Quarter: 2004Q2

REPORT INFORMATION
  Report Type: 
  Country: None (occurrence: None)
  Receive Date: 20040426
  Receipt Date: 20040318
  Transmission Date: 20050107
  Serious: Yes (Life-Threatening, Hospitalization)
  Sender: FDA-Public Use
  Company Number: US-BRISTOL-MYERS SQUIBB COMPANY-12536108

PATIENT
  Age: 77 Year
  Sex: Female

DRUGS (6)
  1. DEFINITY [Suspect]
     Indication: MITRAL VALVE STENOSIS
     Route: 042
     Dates: start: 20040224, end: 20040224
  2. LASIX [Concomitant]
  3. ZESTRIL [Concomitant]
  4. SOTALOL HCL [Concomitant]
  5. GLUCOVANCE [Concomitant]
     Dosage: DOSE VALUE:  5/500
  6. MAGNESIUM OXIDE [Concomitant]

REACTIONS (1)
  - APNOEIC ATTACK [None]
